FAERS Safety Report 23048946 (Version 1)
Quarter: 2023Q4

REPORT INFORMATION
  Report Type: Spontaneous
  Country: FR (occurrence: FR)
  Receive Date: 20231010
  Receipt Date: 20231010
  Transmission Date: 20240110
  Serious: Yes (Other)
  Sender: FDA-Public Use
  Company Number: FR-MLMSERVICE-20230922-4564265-1

PATIENT
  Age: 77 Year
  Sex: Male

DRUGS (3)
  1. TEMOZOLOMIDE [Suspect]
     Active Substance: TEMOZOLOMIDE
     Indication: Glioblastoma
  2. PREDNISONE [Suspect]
     Active Substance: PREDNISONE
     Indication: Glioblastoma
  3. TEMOZOLOMIDE [Suspect]
     Active Substance: TEMOZOLOMIDE
     Indication: Glioblastoma

REACTIONS (2)
  - Cerebral nocardiosis [Recovering/Resolving]
  - Brain abscess [Recovering/Resolving]
